FAERS Safety Report 4503817-8 (Version None)
Quarter: 2004Q4

REPORT INFORMATION
  Report Type: 
  Country: None (occurrence: None)
  Receive Date: 20041117
  Receipt Date: 20041015
  Transmission Date: 20050328
  Serious: Yes (Disabling)
  Sender: FDA-Public Use
  Company Number: US-MERCK-0410USA02403

PATIENT
  Age: 52 Year
  Sex: Female

DRUGS (7)
  1. VIOXX [Suspect]
     Indication: ARTHRITIS
     Route: 048
     Dates: start: 19990101, end: 20040101
  2. ZOLOFT [Concomitant]
     Route: 065
  3. PRINZIDE [Concomitant]
     Route: 065
  4. FLEXERIL [Concomitant]
     Route: 065
  5. PRILOSEC [Concomitant]
     Route: 065
  6. VICODIN [Concomitant]
     Route: 065
  7. XANAX [Concomitant]
     Route: 065

REACTIONS (2)
  - CARDIAC DISORDER [None]
  - MUSCULAR WEAKNESS [None]
